FAERS Safety Report 6538324-4 (Version None)
Quarter: 2010Q1

REPORT INFORMATION
  Report Type: 
  Country: None (occurrence: None)
  Receive Date: 20100112
  Receipt Date: 20100112
  Transmission Date: 20100710
  Serious: Yes (Hospitalization)
  Sender: FDA-Public Use
  Company Number: None

PATIENT
  Sex: Female
  Weight: 60.782 kg

DRUGS (1)
  1. LIP MENDER HYDRATING COMPLEX 5ML TUBE H20 PLUS [Suspect]
     Dosage: TINY SMEAR ON UPPER LIP ONCE BUCCAL
     Route: 002
     Dates: start: 20100107, end: 20100107

REACTIONS (2)
  - LIP SWELLING [None]
  - NASAL OEDEMA [None]
